FAERS Safety Report 7088926-4 (Version None)
Quarter: 2010Q4

REPORT INFORMATION
  Report Type: 
  Country: None (occurrence: None)
  Receive Date: 20101108
  Receipt Date: 20101101
  Transmission Date: 20110411
  Serious: Yes (Other)
  Sender: FDA-Public Use
  Company Number: PHHY2010US73339

PATIENT

DRUGS (1)
  1. TEKTURNA [Suspect]
     Dosage: UNK

REACTIONS (1)
  - ANAL HAEMORRHAGE [None]
